FAERS Safety Report 15481648 (Version 1)
Quarter: 2018Q4

REPORT INFORMATION
  Report Type: Spontaneous
  Country: US (occurrence: US)
  Receive Date: 20181010
  Receipt Date: 20181010
  Transmission Date: 20190205
  Serious: Yes (Hospitalization, Other)
  Sender: FDA-Public Use
  Company Number: US-ACCORD-073100

PATIENT
  Age: 75 Year
  Sex: Female
  Weight: 70.31 kg

DRUGS (1)
  1. HYDROCHLOROTHIAZIDE. [Suspect]
     Active Substance: HYDROCHLOROTHIAZIDE
     Indication: BLOOD PRESSURE MEASUREMENT
     Route: 048
     Dates: start: 2014, end: 201809

REACTIONS (6)
  - Bacterial infection [Unknown]
  - Blood potassium decreased [Unknown]
  - Sinusitis [Unknown]
  - Hypertension [Unknown]
  - Deafness [Unknown]
  - Vision blurred [Unknown]

NARRATIVE: CASE EVENT DATE: 201805
